FAERS Safety Report 7971086-2 (Version None)
Quarter: 2011Q4

REPORT INFORMATION
  Report Type: 
  Country: None (occurrence: None)
  Receive Date: 20111212
  Receipt Date: 20111212
  Transmission Date: 20120403
  Serious: Yes (Life-Threatening, Hospitalization, Other)
  Sender: FDA-Public Use
  Company Number: None

PATIENT
  Sex: Female
  Weight: 63.502 kg

DRUGS (1)
  1. ARIMIDEX [Suspect]
     Indication: BREAST CANCER
     Dosage: 1
     Route: 048
     Dates: start: 20070801, end: 20111210

REACTIONS (3)
  - OSTEOPOROSIS [None]
  - MEMORY IMPAIRMENT [None]
  - AORTIC ANEURYSM [None]
